FAERS Safety Report 16682364 (Version 1)
Quarter: 2019Q3

REPORT INFORMATION
  Report Type: Spontaneous
  Country: US (occurrence: US)
  Receive Date: 20190808
  Receipt Date: 20190808
  Transmission Date: 20191004
  Serious: Yes (Other)
  Sender: FDA-Public Use
  Company Number: US-PFIZER INC-2019337750

PATIENT
  Age: 41 Year
  Sex: Male
  Weight: 87.98 kg

DRUGS (3)
  1. SOMAVERT [Suspect]
     Active Substance: PEGVISOMANT
     Indication: ACROMEGALY
     Dosage: 30 MG, DAILY
     Route: 058
     Dates: start: 2008, end: 20190601
  2. SOMAVERT [Suspect]
     Active Substance: PEGVISOMANT
     Indication: GIGANTISM
  3. SOMAVERT [Suspect]
     Active Substance: PEGVISOMANT
     Indication: ILL-DEFINED DISORDER

REACTIONS (2)
  - Joint swelling [Unknown]
  - Pituitary tumour [Recovered/Resolved]

NARRATIVE: CASE EVENT DATE: 20190601
